FAERS Safety Report 11179573 (Version 6)
Quarter: 2015Q4

REPORT INFORMATION
  Report Type: Report from Study
  Country: US (occurrence: US)
  Receive Date: 20150611
  Receipt Date: 20151230
  Transmission Date: 20160304
  Serious: Yes (Death, Hospitalization, Other)
  Sender: FDA-Public Use
  Company Number: US-AMGEN-USASL2015054870

PATIENT
  Age: 61 Year
  Sex: Male

DRUGS (13)
  1. BLINCYTO [Suspect]
     Active Substance: BLINATUMOMAB
     Indication: ACUTE LYMPHOCYTIC LEUKAEMIA
     Dosage: 9 MUG, UNK
     Route: 041
     Dates: start: 20150529
  2. KETOCONAZOLE. [Concomitant]
     Active Substance: KETOCONAZOLE
     Dosage: UNK
  3. HYDROCORTISONE. [Concomitant]
     Active Substance: HYDROCORTISONE
     Dosage: UNK
  4. NORCO [Concomitant]
     Active Substance: ACETAMINOPHEN\HYDROCODONE BITARTRATE
     Dosage: UNK UNK, AS NECESSARY
  5. PREDNISONE. [Concomitant]
     Active Substance: PREDNISONE
     Dosage: 10 MG, EVERY OTHER DAY
  6. NEXIUM [Concomitant]
     Active Substance: ESOMEPRAZOLE MAGNESIUM
     Indication: CHEMOTHERAPY
     Dosage: 40 MG, UNK
  7. DEXAMETHASONE. [Concomitant]
     Active Substance: DEXAMETHASONE
     Dosage: UNK
  8. VALTREX [Concomitant]
     Active Substance: VALACYCLOVIR HYDROCHLORIDE
     Dosage: 2 G, QID
  9. CARVEDILOL. [Concomitant]
     Active Substance: CARVEDILOL
     Dosage: 6.25 MG, UNK
  10. VICODIN [Concomitant]
     Active Substance: ACETAMINOPHEN\HYDROCODONE BITARTRATE
     Indication: PAIN
     Dosage: UNK
  11. CELEXA [Concomitant]
     Active Substance: CITALOPRAM HYDROBROMIDE
     Dosage: UNK
  12. BACTRIM [Concomitant]
     Active Substance: SULFAMETHOXAZOLE\TRIMETHOPRIM
     Dosage: 800/160 MG, BID
     Route: 048
  13. COREG [Concomitant]
     Active Substance: CARVEDILOL
     Dosage: 6.2 MG, BID

REACTIONS (24)
  - Hypophagia [Unknown]
  - Quality of life decreased [Unknown]
  - Fatigue [Recovering/Resolving]
  - Parainfluenzae virus infection [Recovering/Resolving]
  - Asthenia [Unknown]
  - Graft versus host disease [Unknown]
  - White blood cell count decreased [Unknown]
  - Liver function test abnormal [Unknown]
  - Heart rate increased [Recovered/Resolved]
  - Death [Fatal]
  - Depression [Not Recovered/Not Resolved]
  - Haemoglobin decreased [Unknown]
  - Performance status decreased [Unknown]
  - Pyrexia [Recovered/Resolved]
  - Blood count abnormal [Recovering/Resolving]
  - Perirectal abscess [Recovering/Resolving]
  - Weight decreased [Unknown]
  - Hypotension [Recovered/Resolved]
  - Blood magnesium decreased [Unknown]
  - Infection [Unknown]
  - Cardiac disorder [Recovered/Resolved]
  - Blood glucose increased [Not Recovered/Not Resolved]
  - Blood potassium decreased [Unknown]
  - Cough [Unknown]

NARRATIVE: CASE EVENT DATE: 201506
